FAERS Safety Report 5954251-5 (Version None)
Quarter: 2008Q4

REPORT INFORMATION
  Report Type: 
  Country: None (occurrence: None)
  Receive Date: 20081117
  Receipt Date: 20080731
  Transmission Date: 20090506
  Serious: No
  Sender: FDA-Public Use
  Company Number: US-AMGEN-KDL257093

PATIENT
  Sex: Female
  Weight: 79.9 kg

DRUGS (9)
  1. ENBREL [Suspect]
     Indication: RHEUMATOID ARTHRITIS
     Route: 058
     Dates: start: 20070501
  2. METHOTREXATE [Concomitant]
     Route: 048
     Dates: start: 20050101
  3. ASPIRIN [Concomitant]
  4. DALMANE [Concomitant]
  5. LIPITOR [Concomitant]
  6. MOBIC [Concomitant]
  7. PAXIL [Concomitant]
  8. FOLIC ACID [Concomitant]
  9. PERCOCET [Concomitant]

REACTIONS (1)
  - INFECTED BITES [None]
